FAERS Safety Report 20933168 (Version 2)
Quarter: 2022Q2

REPORT INFORMATION
  Report Type: Spontaneous
  Country: GB (occurrence: GB)
  Receive Date: 20220608
  Receipt Date: 20220616
  Transmission Date: 20220721
  Serious: Yes (Other)
  Sender: FDA-Public Use
  Company Number: None

PATIENT
  Age: 50 Year
  Sex: Female
  Weight: 48 kg

DRUGS (7)
  1. ESTRADIOL [Suspect]
     Active Substance: ESTRADIOL
     Indication: Product used for unknown indication
     Dosage: UNK UNK, 2X/WEEK (100 MICROGRAMS/24 HOURS)
     Dates: start: 20220530
  2. ESTRADIOL [Concomitant]
     Active Substance: ESTRADIOL
     Dosage: UNK UNK, 2X/WEEK
     Dates: start: 20220303
  3. HYDROXOCOBALAMIN [Concomitant]
     Active Substance: HYDROXOCOBALAMIN
     Dosage: 5 MG
     Dates: start: 20211122
  4. LANSOPRAZOLE [Concomitant]
     Active Substance: LANSOPRAZOLE
     Dosage: UNK UNK, 1X/DAY
     Dates: start: 20220505
  5. PROGESTERONE [Concomitant]
     Active Substance: PROGESTERONE
     Dosage: UNK UNK, 1X/DAY
     Dates: start: 20211122
  6. VENTOLIN [Concomitant]
     Active Substance: ALBUTEROL SULFATE
     Dosage: 1 DF, AS NEEDED
     Route: 055
     Dates: start: 20211122
  7. ESTRADIOL [Concomitant]
     Active Substance: ESTRADIOL
     Dosage: UNK, CYCLIC (5X/DAY)
     Dates: start: 20211122

REACTIONS (2)
  - Rash [Unknown]
  - Rash vesicular [Unknown]

NARRATIVE: CASE EVENT DATE: 20220530
